FAERS Safety Report 9321242 (Version 1)
Quarter: 2013Q2

REPORT INFORMATION
  Report Type: Spontaneous
  Country: HR (occurrence: HR)
  Receive Date: 20130531
  Receipt Date: 20130531
  Transmission Date: 20140414
  Serious: Yes (Hospitalization)
  Sender: FDA-Public Use
  Company Number: HR-TEVA-406889ISR

PATIENT
  Age: 60 Year
  Sex: Male

DRUGS (4)
  1. MEMANTINE [Suspect]
     Indication: DEMENTIA ALZHEIMER^S TYPE
     Dosage: 20 MILLIGRAM DAILY;
  2. BISOPROLOL [Concomitant]
     Dosage: 2.5 MILLIGRAM DAILY;
  3. PAROXETINE [Concomitant]
     Dosage: 30 MILLIGRAM DAILY;
  4. HALOPERIDOL [Concomitant]
     Dosage: 1 MILLIGRAM DAILY;

REACTIONS (2)
  - Loss of consciousness [Recovered/Resolved]
  - Hypotonia [Recovered/Resolved]
